FAERS Safety Report 14102353 (Version 2)
Quarter: 2018Q1

REPORT INFORMATION
  Report Type: Spontaneous
  Country: GB (occurrence: GB)
  Receive Date: 20171018
  Receipt Date: 20180105
  Transmission Date: 20180508
  Serious: Yes (Hospitalization, Other)
  Sender: FDA-Public Use
  Company Number: GB-ABBVIE-17P-167-2134375-00

PATIENT
  Sex: Female

DRUGS (2)
  1. EPILIM [Suspect]
     Active Substance: VALPROATE SODIUM
     Indication: SEIZURE
     Dosage: 500MG AND 300MG TABLETS
     Route: 048
  2. EPILIM [Suspect]
     Active Substance: VALPROATE SODIUM
     Route: 048

REACTIONS (5)
  - Product physical issue [Unknown]
  - Product storage error [Unknown]
  - Eye haemorrhage [Unknown]
  - Seizure [Unknown]
  - Ocular hyperaemia [Unknown]
